FAERS Safety Report 4576179-8 (Version None)
Quarter: 2005Q1

REPORT INFORMATION
  Report Type: 
  Country: None (occurrence: None)
  Receive Date: 20050204
  Receipt Date: 20050121
  Transmission Date: 20050727
  Serious: Yes (Hospitalization)
  Sender: FDA-Public Use
  Company Number: 2005AP00045

PATIENT
  Age: 44 Year
  Sex: Male
  Weight: 61 kg

DRUGS (10)
  1. IRESSA [Suspect]
     Indication: NASOPHARYNGEAL CANCER
     Dosage: 500 MG DAILY PO
     Route: 048
     Dates: start: 20040923, end: 20041017
  2. IRESSA [Suspect]
     Indication: NASOPHARYNGEAL CANCER
     Dosage: 250 MG DAILY PO
     Route: 048
     Dates: start: 20041102, end: 20050105
  3. IRESSA [Suspect]
     Indication: NASOPHARYNGEAL CANCER
     Dosage: 250 MG DAILY PO
     Route: 048
     Dates: start: 20050111
  4. DICLOGESIC TABLET [Concomitant]
  5. SENNA [Concomitant]
  6. MORPHINE SULFATE [Concomitant]
  7. MINOCYCLINE HCL [Concomitant]
  8. LACTULOSE [Concomitant]
  9. CLINDAMYCIN [Concomitant]
  10. SOFRADEX [Concomitant]

REACTIONS (3)
  - CELLULITIS [None]
  - DYSPHAGIA [None]
  - SKIN TOXICITY [None]
